FAERS Safety Report 6258315-0 (Version None)
Quarter: 2009Q3

REPORT INFORMATION
  Report Type: 
  Country: None (occurrence: None)
  Receive Date: 20090707
  Receipt Date: 20090624
  Transmission Date: 20100115
  Serious: Yes (Hospitalization, Other)
  Sender: FDA-Public Use
  Company Number: DK-NOVOPROD-287181

PATIENT
  Age: 49 Year
  Sex: Female

DRUGS (2)
  1. INSULATARD FLEXPEN [Suspect]
     Indication: DIABETES MELLITUS
     Dosage: 26 IU, UNKNOWN
     Dates: start: 19890101
  2. NOVOLOG [Suspect]
     Indication: DIABETES MELLITUS
     Dosage: 3+6+6 UNK, UNK

REACTIONS (5)
  - HYPOGLYCAEMIA UNAWARENESS [None]
  - HYPOGLYCAEMIC UNCONSCIOUSNESS [None]
  - INJECTION SITE REACTION [None]
  - LOSS OF CONSCIOUSNESS [None]
  - PRODUCT QUALITY ISSUE [None]
